FAERS Safety Report 26177801 (Version 1)
Quarter: 2025Q4

REPORT INFORMATION
  Report Type: Spontaneous
  Country: CH (occurrence: CH)
  Receive Date: 20251219
  Receipt Date: 20251219
  Transmission Date: 20260117
  Serious: Yes (Hospitalization)
  Sender: ASTELLAS
  Company Number: CH-ASTELLAS-2025-AER-059425

PATIENT
  Age: 53 Year
  Sex: Female

DRUGS (17)
  1. ZOLBETUXIMAB [Suspect]
     Active Substance: ZOLBETUXIMAB
     Indication: Metastatic gastric cancer
     Dosage: 1 CYCLE
     Route: 042
     Dates: start: 20251008, end: 20251105
  2. IRZolpidem zentiva [Concomitant]
     Indication: Product used for unknown indication
     Dosage: 0-0-1
     Route: 065
  3. ASA Cardio [Concomitant]
     Indication: Product used for unknown indication
     Dosage: 100M (AS REPORTED) 1-0-0
     Route: 065
  4. BISOPROLOL [Concomitant]
     Active Substance: BISOPROLOL
     Indication: Product used for unknown indication
     Dosage: 1-0-0
     Route: 065
  5. ATORVASTATIN [Concomitant]
     Active Substance: ATORVASTATIN
     Indication: Product used for unknown indication
     Dosage: 1-0-0
     Route: 065
  6. PANTOPRAZOLE SODIUM [Concomitant]
     Active Substance: PANTOPRAZOLE SODIUM
     Indication: Product used for unknown indication
     Dosage: 1-0-1
     Route: 065
  7. PANTOPRAZOLE SODIUM [Concomitant]
     Active Substance: PANTOPRAZOLE SODIUM
     Dosage: 1-0-0
     Route: 065
  8. CREON [Concomitant]
     Active Substance: PANCRELIPASE AMYLASE\PANCRELIPASE LIPASE\PANCRELIPASE PROTEASE
     Indication: Product used for unknown indication
     Dosage: 25000 IU KAPS, 2-2-2
     Route: 065
  9. CALCIUM CARBONATE\CHOLECALCIFEROL [Concomitant]
     Active Substance: CALCIUM CARBONATE\CHOLECALCIFEROL
     Indication: Product used for unknown indication
     Dosage: 1-0-0
     Route: 065
  10. HERBALS\PLANTAGO OVATA LEAF [Concomitant]
     Active Substance: HERBALS\PLANTAGO OVATA LEAF
     Indication: Product used for unknown indication
     Dosage: 1-0-0
     Route: 065
  11. DEXAMETHASONE [Concomitant]
     Active Substance: DEXAMETHASONE
     Indication: Prophylaxis of nausea and vomiting
     Dosage: D2 D3, 1-0-0
     Route: 048
  12. AKYNZEO [Concomitant]
     Indication: Product used for unknown indication
     Dosage: ON THE DAY OF CHEMOTHERAPY
     Route: 065
  13. Paspertin [Concomitant]
     Indication: Product used for unknown indication
     Dosage: 10MG MAX
     Route: 065
  14. IRLaxoberon [Concomitant]
     Indication: Product used for unknown indication
     Dosage: TR 5?
     Route: 065
  15. IRDafalgan [Concomitant]
     Indication: Product used for unknown indication
     Route: 065
  16. DEXAMETHASONE [Concomitant]
     Active Substance: DEXAMETHASONE
     Indication: Prophylaxis of nausea and vomiting
     Dosage: PREMED ON THE DAY OF THERAPY
     Route: 048
  17. OLANZAPINE [Concomitant]
     Active Substance: OLANZAPINE
     Indication: Prophylaxis of nausea and vomiting
     Dosage: 0-0-1, CONTINUOUSLY FROM DAY 8 OF THE 1ST CYCLE
     Route: 048

REACTIONS (8)
  - Malnutrition [Unknown]
  - Capillary leak syndrome [Unknown]
  - Hypoalbuminaemia [Unknown]
  - Electrolyte imbalance [Unknown]
  - Hypovitaminosis [Unknown]
  - Decreased appetite [Unknown]
  - Vomiting [Unknown]
  - Nausea [Recovered/Resolved]

NARRATIVE: CASE EVENT DATE: 20250101
